FAERS Safety Report 16248813 (Version 4)
Quarter: 2019Q4

REPORT INFORMATION
  Report Type: Report from Study
  Country: US (occurrence: US)
  Receive Date: 20190429
  Receipt Date: 20191111
  Transmission Date: 20200122
  Serious: Yes (Other)
  Sender: FDA-Public Use
  Company Number: PHEH2019US017546

PATIENT
  Sex: Female

DRUGS (1)
  1. COSENTYX [Suspect]
     Active Substance: SECUKINUMAB
     Indication: PSORIASIS
     Dosage: 300 MG, QMO (Q4W)
     Route: 058
     Dates: start: 20180612

REACTIONS (8)
  - Psoriatic arthropathy [Unknown]
  - Therapeutic product effect decreased [Unknown]
  - Lung disorder [Unknown]
  - Psoriasis [Unknown]
  - Viral infection [Recovering/Resolving]
  - Irritable bowel syndrome [Unknown]
  - Chronic obstructive pulmonary disease [Unknown]
  - Skin haemorrhage [Unknown]
